FAERS Safety Report 6501391-8 (Version None)
Quarter: 2009Q4

REPORT INFORMATION
  Report Type: 
  Country: None (occurrence: None)
  Receive Date: 20091216
  Receipt Date: 20091208
  Transmission Date: 20100525
  Serious: Yes (Other)
  Sender: FDA-Public Use
  Company Number: US-BAYER-200929095NA

PATIENT
  Age: 21 Year
  Sex: Female
  Weight: 62 kg

DRUGS (3)
  1. YASMIN [Suspect]
     Indication: CONTRACEPTION
     Route: 048
     Dates: start: 20090625, end: 20090801
  2. LAMICTAL [Interacting]
     Indication: PETIT MAL EPILEPSY
     Dates: start: 20050101
  3. LAMICTAL [Concomitant]
     Route: 048
     Dates: start: 20050101

REACTIONS (1)
  - PETIT MAL EPILEPSY [None]
